FAERS Safety Report 12296777 (Version 2)
Quarter: 2016Q2

REPORT INFORMATION
  Report Type: Spontaneous
  Country: US (occurrence: US)
  Receive Date: 20160422
  Receipt Date: 20160429
  Transmission Date: 20160815
  Serious: No
  Sender: FDA-Public Use
  Company Number: US-TEVA-653595USA

PATIENT
  Age: 49 Year
  Sex: Male
  Weight: 77.18 kg

DRUGS (7)
  1. NUVIGIL [Suspect]
     Active Substance: ARMODAFINIL
     Indication: FATIGUE
  2. VIVARIN [Concomitant]
     Active Substance: CAFFEINE
  3. NUVIGIL [Suspect]
     Active Substance: ARMODAFINIL
     Indication: SLEEP APNOEA SYNDROME
     Dosage: 300 MILLIGRAM DAILY;
     Route: 065
     Dates: start: 201211
  4. NUVIGIL [Suspect]
     Active Substance: ARMODAFINIL
     Indication: CONCUSSION
  5. OXYCODONE [Concomitant]
     Active Substance: OXYCODONE
  6. LYRICA [Concomitant]
     Active Substance: PREGABALIN
  7. NUVIGIL [Suspect]
     Active Substance: ARMODAFINIL
     Indication: STENOSIS

REACTIONS (8)
  - Intentional product use issue [Unknown]
  - Impaired work ability [Not Recovered/Not Resolved]
  - Drug effect incomplete [Unknown]
  - Activities of daily living impaired [Not Recovered/Not Resolved]
  - Somnolence [Not Recovered/Not Resolved]
  - Drug dose omission [Recovered/Resolved]
  - Product use issue [Unknown]
  - Drug screen false positive [Not Recovered/Not Resolved]

NARRATIVE: CASE EVENT DATE: 201211
